FAERS Safety Report 11905725 (Version 2)
Quarter: 2016Q1

REPORT INFORMATION
  Report Type: Spontaneous
  Country: ES (occurrence: ES)
  Receive Date: 20160111
  Receipt Date: 20160127
  Transmission Date: 20160526
  Serious: Yes (Other)
  Sender: FDA-Public Use
  Company Number: ES-ACCORD-036692

PATIENT
  Age: 43 Year
  Sex: Female

DRUGS (1)
  1. DOCETAXEL. [Suspect]
     Active Substance: DOCETAXEL
     Indication: BREAST CANCER METASTATIC
     Dosage: FIRST CYCLE OF TREATMENT WITH DOCETAXEL

REACTIONS (5)
  - Rash erythematous [Recovered/Resolved]
  - Pain [Recovered/Resolved]
  - Recall phenomenon [Recovered/Resolved]
  - Photosensitivity reaction [Recovered/Resolved]
  - Burning sensation [Recovered/Resolved]
